FAERS Safety Report 17244484 (Version 4)
Quarter: 2020Q3

REPORT INFORMATION
  Report Type: Spontaneous
  Country: US (occurrence: US)
  Receive Date: 20200107
  Receipt Date: 20200930
  Transmission Date: 20201102
  Serious: Yes (Hospitalization, Other)
  Sender: FDA-Public Use
  Company Number: US-GILEAD-2020-0445105

PATIENT
  Age: 54 Year
  Sex: Female
  Weight: 72.74 kg

DRUGS (88)
  1. TRUVADA [Suspect]
     Active Substance: EMTRICITABINE\TENOFOVIR DISOPROXIL FUMARATE
     Dosage: 200 MG/300 MG, QD
     Route: 048
     Dates: start: 20111031, end: 20170412
  2. FIBER [Concomitant]
     Active Substance: PSYLLIUM HUSK
  3. ZYRTEC [Concomitant]
     Active Substance: CETIRIZINE HYDROCHLORIDE
  4. PRILOSEC [Concomitant]
     Active Substance: OMEPRAZOLE MAGNESIUM
  5. ALBUTEROL SULFATE. [Concomitant]
     Active Substance: ALBUTEROL SULFATE
  6. GANCICLOVIR. [Concomitant]
     Active Substance: GANCICLOVIR
  7. TRUVADA [Suspect]
     Active Substance: EMTRICITABINE\TENOFOVIR DISOPROXIL FUMARATE
     Indication: HIV INFECTION
     Dosage: 200 MG?300 MG, QD
     Route: 048
     Dates: start: 200807, end: 20180222
  8. ATORVASTATIN [Concomitant]
     Active Substance: ATORVASTATIN
  9. BACTRIM [Concomitant]
     Active Substance: SULFAMETHOXAZOLE\TRIMETHOPRIM
  10. PREDNISONE. [Concomitant]
     Active Substance: PREDNISONE
  11. CARVEDILOL. [Concomitant]
     Active Substance: CARVEDILOL
  12. HYDRALAZINE [Concomitant]
     Active Substance: HYDRALAZINE HYDROCHLORIDE
  13. EZETIMIBE. [Concomitant]
     Active Substance: EZETIMIBE
  14. AZITHROMYCIN ANHYDROUS. [Concomitant]
     Active Substance: AZITHROMYCIN ANHYDROUS
  15. HYOSCYAMINE. [Concomitant]
     Active Substance: HYOSCYAMINE
  16. PROMETHAZINE ? CODEINE [CODEINE PHOSPHATE;PROMETHAZINE HYDROCHLORIDE] [Concomitant]
  17. FLOVENT [Concomitant]
     Active Substance: FLUTICASONE PROPIONATE
  18. PROAIR HFA [Concomitant]
     Active Substance: ALBUTEROL SULFATE
  19. RANITIDINE. [Concomitant]
     Active Substance: RANITIDINE
  20. ZOFRAN [Concomitant]
     Active Substance: ONDANSETRON HYDROCHLORIDE
  21. ROCEPHIN [Concomitant]
     Active Substance: CEFTRIAXONE SODIUM
  22. PATANASE [Concomitant]
     Active Substance: OLOPATADINE HYDROCHLORIDE
  23. LOMOTIL [Concomitant]
     Active Substance: ATROPINE SULFATE\DIPHENOXYLATE HYDROCHLORIDE
  24. PROMETHAZINE [Concomitant]
     Active Substance: PROMETHAZINE HYDROCHLORIDE
  25. POLYETHYLENE GLYCOL 3350. [Concomitant]
     Active Substance: POLYETHYLENE GLYCOL 3350
  26. ELIQUIS [Concomitant]
     Active Substance: APIXABAN
  27. MONTELUKAST SODIUM. [Concomitant]
     Active Substance: MONTELUKAST SODIUM
  28. MUCINEX [Concomitant]
     Active Substance: GUAIFENESIN
  29. TRUVADA [Suspect]
     Active Substance: EMTRICITABINE\TENOFOVIR DISOPROXIL FUMARATE
     Dosage: 200 MG?300 MG, QD
     Route: 048
     Dates: start: 20160429, end: 20170220
  30. VITAMIN B12 [Concomitant]
     Active Substance: CYANOCOBALAMIN
  31. CALCIUM 500+D [Concomitant]
     Active Substance: CALCIUM\VITAMIN D
  32. LEVOTHYROXINE. [Concomitant]
     Active Substance: LEVOTHYROXINE
  33. ZANTAC [Concomitant]
     Active Substance: RANITIDINE HYDROCHLORIDE
  34. NYSTATIN. [Concomitant]
     Active Substance: NYSTATIN
  35. ZOMIG [Concomitant]
     Active Substance: ZOLMITRIPTAN
  36. BENZONATATE. [Concomitant]
     Active Substance: BENZONATATE
  37. XYLOCAINE [Concomitant]
     Active Substance: LIDOCAINE HYDROCHLORIDE
  38. LACTULOSE. [Concomitant]
     Active Substance: LACTULOSE
  39. MIRALAX [Concomitant]
     Active Substance: POLYETHYLENE GLYCOL 3350
  40. ZYRTEC [Concomitant]
     Active Substance: CETIRIZINE HYDROCHLORIDE
  41. FERROUS SULFATE. [Concomitant]
     Active Substance: FERROUS SULFATE
  42. NITROFURANTOIN. [Concomitant]
     Active Substance: NITROFURANTOIN
  43. SILVER SULFADIAZINE. [Concomitant]
     Active Substance: SILVER SULFADIAZINE
  44. ZOLMITRIPTAN. [Concomitant]
     Active Substance: ZOLMITRIPTAN
  45. DIPHENHYDRAMINE. [Concomitant]
     Active Substance: DIPHENHYDRAMINE
  46. AMPICILLIN [Concomitant]
     Active Substance: AMPICILLIN
  47. CORTISONE [Concomitant]
     Active Substance: CORTISONE
  48. PANTOPRAZOLE [Concomitant]
     Active Substance: PANTOPRAZOLE
  49. TETRACYCLINE [Concomitant]
     Active Substance: TETRACYCLINE
  50. LOPID [Concomitant]
     Active Substance: GEMFIBROZIL
  51. FENTANYL. [Concomitant]
     Active Substance: FENTANYL
  52. GLUCOSE [Concomitant]
     Active Substance: DEXTROSE
  53. TRUVADA [Suspect]
     Active Substance: EMTRICITABINE\TENOFOVIR DISOPROXIL FUMARATE
     Dosage: 1 DOSAGE FORM, QD
     Route: 048
     Dates: start: 20171005, end: 20180129
  54. LOSARTAN. [Concomitant]
     Active Substance: LOSARTAN
  55. LOMOTIL [LOPERAMIDE HYDROCHLORIDE] [Concomitant]
     Active Substance: LOPERAMIDE HYDROCHLORIDE
  56. CHERATUSSIN AC [Concomitant]
     Active Substance: CODEINE PHOSPHATE\GUAIFENESIN
  57. MUPIROCIN. [Concomitant]
     Active Substance: MUPIROCIN
  58. ADVIL [IBUPROFEN] [Concomitant]
     Active Substance: IBUPROFEN
  59. IBUPROFEN. [Concomitant]
     Active Substance: IBUPROFEN
  60. TYLENOL [Concomitant]
     Active Substance: ACETAMINOPHEN
  61. SIMVASTATIN. [Concomitant]
     Active Substance: SIMVASTATIN
  62. MIDAZOLAM. [Concomitant]
     Active Substance: MIDAZOLAM
  63. CLONIDINE. [Concomitant]
     Active Substance: CLONIDINE
  64. NASACORT [Concomitant]
     Active Substance: TRIAMCINOLONE ACETONIDE
  65. MORPHINE [Concomitant]
     Active Substance: MORPHINE
  66. BENADRYL ALLERGY [Concomitant]
     Active Substance: DIPHENHYDRAMINE HYDROCHLORIDE
  67. CALCIUM GLUCONATE. [Concomitant]
     Active Substance: CALCIUM GLUCONATE
  68. MECLIZINE [Concomitant]
     Active Substance: MECLIZINE HYDROCHLORIDE
  69. INSULIN H R [Concomitant]
  70. LEVOXYL [Concomitant]
     Active Substance: LEVOTHYROXINE SODIUM
  71. PHENERGAN [Concomitant]
     Active Substance: PROMETHAZINE HYDROCHLORIDE
  72. PREDNISOLONE. [Concomitant]
     Active Substance: PREDNISOLONE
  73. TURMERIC [CURCUMA LONGA] [Concomitant]
     Active Substance: HERBALS\TURMERIC
  74. ACYCLOVIR [ACICLOVIR] [Concomitant]
     Active Substance: ACYCLOVIR
  75. ATENOLOL. [Concomitant]
     Active Substance: ATENOLOL
  76. DEXTROSE. [Concomitant]
     Active Substance: DEXTROSE
  77. DIPHENOXYLATE/ATROPINE [Concomitant]
     Active Substance: ATROPINE\DIPHENOXYLATE
  78. KALETRA [Concomitant]
     Active Substance: LOPINAVIR\RITONAVIR
  79. OMEPRAZOLE. [Concomitant]
     Active Substance: OMEPRAZOLE
  80. PROBIOTIC [BIFIDOBACTERIUM LACTIS] [Concomitant]
     Active Substance: BIFIDOBACTERIUM ANIMALIS LACTIS
  81. TRIUMEQ [Concomitant]
     Active Substance: ABACAVIR SULFATE\DOLUTEGRAVIR SODIUM\LAMIVUDINE
  82. ACETAMINOPHEN. [Concomitant]
     Active Substance: ACETAMINOPHEN
  83. AMOXICILLIN. [Concomitant]
     Active Substance: AMOXICILLIN
  84. DEXAMETHASONE. [Concomitant]
     Active Substance: DEXAMETHASONE
  85. PENICILLIN NOS [Concomitant]
     Active Substance: PENICILLIN
  86. DIFLUCAN [Concomitant]
     Active Substance: FLUCONAZOLE
  87. DOCUSATE [Concomitant]
     Active Substance: DOCUSATE
  88. CEFDINIR. [Concomitant]
     Active Substance: CEFDINIR

REACTIONS (16)
  - Acute kidney injury [Not Recovered/Not Resolved]
  - Bone density decreased [Unknown]
  - Economic problem [Not Recovered/Not Resolved]
  - Pain [Not Recovered/Not Resolved]
  - Fanconi syndrome acquired [Not Recovered/Not Resolved]
  - Chronic kidney disease [Unknown]
  - Renal tubular necrosis [Not Recovered/Not Resolved]
  - Rib fracture [Unknown]
  - Anxiety [Not Recovered/Not Resolved]
  - Anhedonia [Not Recovered/Not Resolved]
  - Osteopenia [Recovered/Resolved]
  - Emotional distress [Not Recovered/Not Resolved]
  - Metabolic acidosis [Unknown]
  - Osteoporosis postmenopausal [Not Recovered/Not Resolved]
  - Renal failure [Unknown]
  - Fatigue [Unknown]

NARRATIVE: CASE EVENT DATE: 20080912
